FAERS Safety Report 20006093 (Version 2)
Quarter: 2021Q4

REPORT INFORMATION
  Report Type: Spontaneous
  Country: IE (occurrence: IE)
  Receive Date: 20211028
  Receipt Date: 20211101
  Transmission Date: 20220303
  Serious: Yes (Hospitalization, Other)
  Sender: FDA-Public Use
  Company Number: IE-VELOXIS PHARMACEUTICALS-2021VELIE-000520

PATIENT
  Age: 59 Year
  Sex: Female

DRUGS (10)
  1. FLUCYTOSINE [Suspect]
     Active Substance: FLUCYTOSINE
     Indication: Product used for unknown indication
     Dosage: UNK
     Route: 048
  2. AMPHOTERICIN B [Suspect]
     Active Substance: AMPHOTERICIN B
     Indication: Product used for unknown indication
     Dosage: UNK
  3. FLUCONAZOLE [Interacting]
     Active Substance: FLUCONAZOLE
     Indication: Product used for unknown indication
     Dosage: UNK
     Route: 048
  4. CASPOFUNGIN ACETATE [Suspect]
     Active Substance: CASPOFUNGIN ACETATE
     Indication: Product used for unknown indication
     Dosage: UNK
     Route: 042
  5. ENOXAPARIN [Concomitant]
     Active Substance: ENOXAPARIN
     Indication: Pulmonary embolism
     Dosage: UNK
  6. MIDODRINE [Concomitant]
     Active Substance: MIDODRINE
     Indication: Labile blood pressure
     Dosage: UNK
  7. TACROLIMUS [Concomitant]
     Active Substance: TACROLIMUS
     Indication: Prophylaxis against transplant rejection
     Dosage: UNK
  8. MYCOPHENOLATE MOFETIL [Concomitant]
     Active Substance: MYCOPHENOLATE MOFETIL
     Indication: Prophylaxis against transplant rejection
     Dosage: UNK
  9. TAMOXIFEN [Concomitant]
     Active Substance: TAMOXIFEN
     Indication: Breast cancer
     Dosage: UNK
  10. PIPERACILLIN AND TAZOBACTAM [Concomitant]
     Active Substance: PIPERACILLIN SODIUM\TAZOBACTAM SODIUM
     Indication: Evidence based treatment
     Dosage: UNK

REACTIONS (13)
  - Acute kidney injury [Recovered/Resolved]
  - Device related infection [Recovered/Resolved]
  - Endocarditis candida [Recovered/Resolved]
  - Systemic candida [Recovered/Resolved]
  - Candida sepsis [Recovered/Resolved]
  - Disseminated intravascular coagulation [Recovered/Resolved]
  - Toxicity to various agents [Recovered/Resolved]
  - Urinary tract infection [Recovered/Resolved]
  - Candida infection [Recovered/Resolved]
  - Drug ineffective [Unknown]
  - Immunosuppressant drug level increased [Recovered/Resolved]
  - Off label use [Unknown]
  - Labelled drug-drug interaction medication error [Unknown]
